FAERS Safety Report 8444858-8 (Version None)
Quarter: 2012Q2

REPORT INFORMATION
  Report Type: 
  Country: None (occurrence: None)
  Receive Date: 20120618
  Receipt Date: 20120613
  Transmission Date: 20120825
  Serious: Yes (Other)
  Sender: FDA-Public Use
  Company Number: PHEH2011US03421

PATIENT
  Sex: Female

DRUGS (6)
  1. BIOTIN [Concomitant]
  2. NAPROXEN [Concomitant]
     Indication: PAIN
  3. GILENYA [Suspect]
     Indication: RELAPSING-REMITTING MULTIPLE SCLEROSIS
     Dosage: 0.5 MG, QD
     Route: 048
     Dates: start: 20110601
  4. VYVANSE [Concomitant]
     Dosage: 20 MG, UNK
  5. PROZAC [Concomitant]
     Dosage: 60 MG, UNK
  6. VITAMIN D [Concomitant]

REACTIONS (9)
  - VENTRICULAR EXTRASYSTOLES [None]
  - BACK PAIN [None]
  - HEADACHE [None]
  - SWELLING [None]
  - ALOPECIA [None]
  - ENERGY INCREASED [None]
  - PRURITUS [None]
  - FATIGUE [None]
  - WEIGHT INCREASED [None]
